FAERS Safety Report 22045436 (Version 1)
Quarter: 2023Q1

REPORT INFORMATION
  Report Type: Report from Study
  Country: IT (occurrence: IT)
  Receive Date: 20230228
  Receipt Date: 20230228
  Transmission Date: 20230418
  Serious: Yes (Other)
  Sender: FDA-Public Use
  Company Number: None

PATIENT
  Age: 86 Year
  Sex: Male

DRUGS (9)
  1. DONEPEZIL [Suspect]
     Active Substance: DONEPEZIL
     Indication: Cognitive disorder
     Dosage: UNKNOWN DOSE AND FREQUENCY
     Route: 048
  2. ATORVASTATIN [Concomitant]
     Active Substance: ATORVASTATIN
     Indication: Product used for unknown indication
     Dosage: UNKNOWN DOSE AND FREQUENCY
  3. BISOPROLOL FUMARATE [Concomitant]
     Active Substance: BISOPROLOL FUMARATE
     Indication: Product used for unknown indication
     Dosage: UNKNOWN DOSE AND FREQUENCY
  4. VALSARTAN [Concomitant]
     Active Substance: VALSARTAN
     Indication: Product used for unknown indication
     Dosage: UNKNOWN DOSE AND FREQUENCY
  5. LANSOPRAZOLE [Concomitant]
     Active Substance: LANSOPRAZOLE
     Indication: Product used for unknown indication
     Dosage: UNKNOWN DOSE AND FREQUENCY
  6. VENLAFAXINE HYDROCHLORIDE [Concomitant]
     Active Substance: VENLAFAXINE HYDROCHLORIDE
     Indication: Product used for unknown indication
     Dosage: UNKNOWN DOSE AND FREQUENCY
  7. CHOLINE ALFOSCERATE [Concomitant]
     Active Substance: CHOLINE ALFOSCERATE
     Indication: Product used for unknown indication
     Dosage: UNKNOWN DOSE AND FREQUENCY
  8. DEURSIL [Concomitant]
     Active Substance: URSODIOL
  9. ASPIRIN [Concomitant]
     Active Substance: ASPIRIN
     Indication: Product used for unknown indication
     Dosage: UNKNOWN DOSE AND FREQUENCY

REACTIONS (1)
  - Syncope [Recovering/Resolving]

NARRATIVE: CASE EVENT DATE: 20220926
